FAERS Safety Report 5916648-9 (Version None)
Quarter: 2008Q4

REPORT INFORMATION
  Report Type: 
  Country: None (occurrence: None)
  Receive Date: 20081013
  Receipt Date: 20081005
  Transmission Date: 20090506
  Serious: Yes (Hospitalization, Other)
  Sender: FDA-Public Use
  Company Number: IR-ROCHE-589849

PATIENT
  Age: 27 Year
  Sex: Male

DRUGS (4)
  1. VALCYTE [Suspect]
     Dosage: FOR 28 DAYS
     Route: 048
  2. VALCYTE [Suspect]
     Route: 048
  3. CYMEVENE [Suspect]
     Dosage: STRENGTH IS :  500MG AND FORMULATION IS : 10 ML/VIAL
     Route: 042
  4. CYMEVENE [Suspect]
     Route: 042

REACTIONS (2)
  - DISEASE RECURRENCE [None]
  - PYREXIA [None]
